FAERS Safety Report 11188577 (Version 1)
Quarter: 2015Q2

REPORT INFORMATION
  Report Type: Spontaneous
  Country: CA (occurrence: None)
  Receive Date: 20150612
  Receipt Date: 20150612
  Transmission Date: 20150821
  Serious: Yes (Hospitalization)
  Sender: FDA-Public Use
  Company Number: None

PATIENT
  Age: 62 Year
  Sex: Female
  Weight: 55 kg

DRUGS (8)
  1. AMLODIPINE [Concomitant]
     Active Substance: AMLODIPINE BESYLATE
  2. FUROSEMIDE. [Concomitant]
     Active Substance: FUROSEMIDE
  3. CALCIUM [Concomitant]
     Active Substance: CALCIUM
  4. LOSEC [Concomitant]
     Active Substance: OMEPRAZOLE
  5. ASA [Concomitant]
     Active Substance: ASPIRIN
  6. A SPIRONALACTONE [Concomitant]
  7. NEXAVAR [Suspect]
     Active Substance: SORAFENIB
     Dates: end: 20150423
  8. MULTIVITAMINS [Concomitant]
     Active Substance: VITAMINS

REACTIONS (1)
  - General physical health deterioration [None]

NARRATIVE: CASE EVENT DATE: 20150520
